FAERS Safety Report 5596603-1 (Version None)
Quarter: 2008Q1

REPORT INFORMATION
  Report Type: 
  Country: None (occurrence: None)
  Receive Date: 20080118
  Receipt Date: 20080108
  Transmission Date: 20080703
  Serious: Yes (Other)
  Sender: FDA-Public Use
  Company Number: DE-PFIZER INC-2007097895

PATIENT
  Sex: Female

DRUGS (2)
  1. CHANTIX [Suspect]
     Indication: SMOKING CESSATION THERAPY
     Route: 048
     Dates: start: 20071024, end: 20071209
  2. VENLAFAXINE HCL [Concomitant]
     Indication: DYSTHYMIC DISORDER
     Dosage: DAILY DOSE:150MG
     Route: 048

REACTIONS (2)
  - EATING DISORDER [None]
  - OBSESSIVE-COMPULSIVE DISORDER [None]
